FAERS Safety Report 22243047 (Version 1)
Quarter: 2023Q2

REPORT INFORMATION
  Report Type: Report from Study
  Country: DE (occurrence: DE)
  Receive Date: 20230424
  Receipt Date: 20230424
  Transmission Date: 20230722
  Serious: Yes (Death)
  Sender: FDA-Public Use
  Company Number: DE-MYLANLABS-2023M1042576

PATIENT
  Age: 80 Year
  Sex: Female

DRUGS (1)
  1. PACLITAXEL [Suspect]
     Active Substance: PACLITAXEL
     Indication: Oesophageal squamous cell carcinoma
     Dosage: UNK
     Route: 065

REACTIONS (1)
  - Haematotoxicity [Fatal]
